FAERS Safety Report 23868765 (Version 2)
Quarter: 2024Q4

REPORT INFORMATION
  Report Type: Report from Study
  Country: KR (occurrence: KR)
  Receive Date: 20240517
  Receipt Date: 20241009
  Transmission Date: 20250115
  Serious: Yes (Other)
  Sender: SANOFI AVENTIS
  Company Number: KR-SA-SAC20240515000116

PATIENT
  Age: 61 Year
  Sex: Male
  Weight: 61 kg

DRUGS (5)
  1. DUPILUMAB [Suspect]
     Active Substance: DUPILUMAB
     Indication: Asthma
     Dosage: 1 DF, Q2W
     Route: 058
     Dates: start: 20231012, end: 20240411
  2. HEBRON-F [Concomitant]
     Dosage: 2 DF, BID
     Route: 048
     Dates: start: 20170520
  3. SINGULAIR [Concomitant]
     Active Substance: MONTELUKAST SODIUM
     Indication: Rhinitis allergic
     Dosage: 1 DF, QD
     Route: 048
     Dates: start: 20170520
  4. EBASTEL BORYUNG [Concomitant]
     Indication: Rhinitis allergic
     Dosage: 1 DF, QD
     Route: 048
     Dates: start: 20170520
  5. AERIUS (DESLORATADINE) [Concomitant]
     Active Substance: DESLORATADINE
     Indication: Rhinitis allergic
     Dosage: 1 DF, QD
     Route: 048
     Dates: start: 20200602

REACTIONS (1)
  - Pneumonia [Recovered/Resolved]

NARRATIVE: CASE EVENT DATE: 20240508
